FAERS Safety Report 4543504-3 (Version None)
Quarter: 2004Q4

REPORT INFORMATION
  Report Type: 
  Country: None (occurrence: None)
  Receive Date: 20041229
  Receipt Date: 20041229
  Transmission Date: 20050328
  Serious: Yes (Hospitalization)
  Sender: FDA-Public Use
  Company Number: None

PATIENT
  Age: 52 Year
  Sex: Female
  Weight: 77 kg

DRUGS (2)
  1. ENOXAPARIN SODIUM [Suspect]
     Indication: PULMONARY EMBOLISM
     Dosage: 80MG  BID SUBCUTANEOUS
     Route: 058
     Dates: start: 20041024, end: 20041028
  2. WARFARIN SODIUM [Suspect]
     Indication: PULMONARY EMBOLISM
     Dosage: 6MG  DAILY ORAL
     Route: 048
     Dates: start: 20041024, end: 20041028

REACTIONS (2)
  - ABDOMINAL HAEMATOMA [None]
  - ABDOMINAL PAIN [None]
